FAERS Safety Report 6076129-1 (Version None)
Quarter: 2009Q1

REPORT INFORMATION
  Report Type: 
  Country: None (occurrence: None)
  Receive Date: 20090212
  Receipt Date: 20090211
  Transmission Date: 20090719
  Serious: No
  Sender: FDA-Public Use
  Company Number: US-B.I. PHARMACEUTICALS,INC./RIDGEFIELD-2009-BP-00852BP

PATIENT
  Sex: Male

DRUGS (19)
  1. FLOMAX [Suspect]
     Indication: BENIGN PROSTATIC HYPERPLASIA
     Dosage: .4MG
     Route: 048
     Dates: start: 20080501
  2. FLOMAX [Suspect]
     Indication: PROSTATOMEGALY
  3. POTASSIUM CL ER MICRO [Concomitant]
     Dosage: 40MEQ
  4. LYRICA [Concomitant]
     Dosage: 150MG
  5. TORSEMIDE [Concomitant]
     Dosage: 20MG
  6. BENAZEPRIL HYDROCHLORIDE [Concomitant]
     Route: 048
  7. FEXOFENADINE HCL [Concomitant]
     Dosage: 180MG
  8. FLOMAX [Concomitant]
     Dosage: .4MG
  9. MECLIZINE [Concomitant]
  10. WARFARIN SODIUM [Concomitant]
     Dosage: 5MG
  11. AMIODARONE [Concomitant]
  12. ZANTAC [Concomitant]
     Dosage: 150MG
  13. ALLOPURINOL [Concomitant]
     Dosage: 300MG
  14. SIMVASTIN [Concomitant]
  15. CENTRUM SILVER [Concomitant]
     Indication: SUPPLEMENTATION THERAPY
  16. L-LYSINE [Concomitant]
     Indication: SUPPLEMENTATION THERAPY
  17. MUCINEX [Concomitant]
  18. MULTIVITAMIN [Concomitant]
  19. ZINC [Concomitant]

REACTIONS (2)
  - FALL [None]
  - JOINT INSTABILITY [None]
